FAERS Safety Report 6107423-3 (Version None)
Quarter: 2009Q1

REPORT INFORMATION
  Report Type: 
  Country: None (occurrence: None)
  Receive Date: 20090309
  Receipt Date: 20090302
  Transmission Date: 20090719
  Serious: Yes (Death, Hospitalization)
  Sender: FDA-Public Use
  Company Number: US-ELI_LILLY_AND_COMPANY-US200903000389

PATIENT
  Age: 35 Year
  Sex: Male

DRUGS (10)
  1. CYMBALTA [Suspect]
     Indication: DEPRESSION
     Dosage: 1 D/F, UNK
     Dates: start: 20070101
  2. DIAZEPAM [Concomitant]
     Indication: ANXIETY
  3. RISPERIDONE [Concomitant]
     Indication: HALLUCINATION
  4. MORPHINE [Concomitant]
     Indication: PAIN
  5. OXYCODONE HCL [Concomitant]
     Indication: PAIN
     Dosage: UNK, UNK
  6. GABAPENTIN [Concomitant]
     Indication: PAIN
  7. METHOCARBAMOL [Concomitant]
  8. ZOLPIDEM [Concomitant]
     Indication: INSOMNIA
  9. MIRTAZAPINE [Concomitant]
  10. PHENIRAMINE [Concomitant]

REACTIONS (18)
  - ABNORMAL BEHAVIOUR [None]
  - AGITATION [None]
  - ANGER [None]
  - ANXIETY [None]
  - BACK PAIN [None]
  - COMPLETED SUICIDE [None]
  - DRUG TOXICITY [None]
  - HALLUCINATION, AUDITORY [None]
  - HOMICIDAL IDEATION [None]
  - INFLUENZA [None]
  - INSOMNIA [None]
  - INTENTIONAL SELF-INJURY [None]
  - MAJOR DEPRESSION [None]
  - MICTURITION DISORDER [None]
  - PANIC ATTACK [None]
  - PARANOIA [None]
  - SEDATION [None]
  - SUICIDAL IDEATION [None]
